APPROVED DRUG PRODUCT: METHYLDOPA
Active Ingredient: METHYLDOPA
Strength: 250MG
Dosage Form/Route: TABLET;ORAL
Application: A070669 | Product #001
Applicant: SUPERPHARM CORP
Approved: Jun 23, 1989 | RLD: No | RS: No | Type: DISCN